FAERS Safety Report 9425388 (Version 1)
Quarter: 2013Q3

REPORT INFORMATION
  Report Type: Report from Study
  Country: CA (occurrence: CA)
  Receive Date: 20130729
  Receipt Date: 20130729
  Transmission Date: 20140515
  Serious: Yes (Other)
  Sender: FDA-Public Use
  Company Number: CA-ABBOTT-13P-028-1124016-00

PATIENT
  Sex: Male
  Weight: 79.9 kg

DRUGS (4)
  1. HUMIRA [Suspect]
     Indication: RHEUMATOID ARTHRITIS
     Route: 058
     Dates: start: 20130501, end: 20130612
  2. DICLOFENAC [Concomitant]
     Indication: PAIN MANAGEMENT
     Route: 048
     Dates: start: 2001
  3. LEFLUNOMIDE [Concomitant]
     Indication: PAIN MANAGEMENT
     Route: 048
     Dates: start: 2001
  4. PREDNISONE [Concomitant]
     Indication: PAIN MANAGEMENT
     Route: 048

REACTIONS (3)
  - Gait disturbance [Not Recovered/Not Resolved]
  - Pain in extremity [Recovered/Resolved]
  - Foot fracture [Recovering/Resolving]
